FAERS Safety Report 6377434-1 (Version None)
Quarter: 2009Q3

REPORT INFORMATION
  Report Type: 
  Country: None (occurrence: None)
  Receive Date: 20090923
  Receipt Date: 20090923
  Transmission Date: 20100115
  Serious: Yes (Hospitalization)
  Sender: FDA-Public Use
  Company Number: None

PATIENT
  Age: 40 Year
  Sex: Male
  Weight: 91 kg

DRUGS (10)
  1. WARFARIN [Suspect]
     Indication: THROMBOSIS PROPHYLAXIS
     Dosage: 5MG PO QD X SUM HOME
  2. AMLODIPINE [Concomitant]
  3. CLONIDINE [Concomitant]
  4. IBUPROFEN [Concomitant]
  5. ATORVASTATIN [Concomitant]
  6. LISINOPRIL [Concomitant]
  7. METOPROLOL SUCCINATE [Concomitant]
  8. OMEPRAZOLE [Concomitant]
  9. RENAGEL [Concomitant]
  10. TRAMADOL HCL [Concomitant]

REACTIONS (4)
  - ARTERIOVENOUS FISTULA SITE HAEMORRHAGE [None]
  - DIARRHOEA [None]
  - HYPOPHAGIA [None]
  - INTERNATIONAL NORMALISED RATIO INCREASED [None]
